FAERS Safety Report 23742750 (Version 1)
Quarter: 2024Q2

REPORT INFORMATION
  Report Type: Spontaneous
  Country: US (occurrence: None)
  Receive Date: 20240415
  Receipt Date: 20240415
  Transmission Date: 20240716
  Serious: No
  Sender: FDA-Public Use
  Company Number: None

PATIENT
  Sex: Male

DRUGS (2)
  1. HUMIRA [Suspect]
     Active Substance: ADALIMUMAB
     Dosage: FREQUENCY : WEEKLY;?
     Route: 058
     Dates: start: 201911
  2. AMOXICILLIN [Concomitant]

REACTIONS (4)
  - Abdominal pain [None]
  - Back pain [None]
  - Renal pain [None]
  - Proctitis [None]
